FAERS Safety Report 10192299 (Version 1)
Quarter: 2014Q2

REPORT INFORMATION
  Report Type: Spontaneous
  Country: US (occurrence: US)
  Receive Date: 20140523
  Receipt Date: 20140523
  Transmission Date: 20141212
  Serious: No
  Sender: FDA-Public Use
  Company Number: US-009507513-1405USA011725

PATIENT
  Age: 40 Year
  Sex: Female

DRUGS (1)
  1. IVEMEND [Suspect]
     Indication: PROPHYLAXIS OF NAUSEA AND VOMITING
     Dosage: EMEND VIAL(SDV,MDV OR ADDITIVE) (EA)
     Route: 042

REACTIONS (1)
  - Hypersensitivity [Recovering/Resolving]
